FAERS Safety Report 9434743 (Version 1)
Quarter: 2013Q3

REPORT INFORMATION
  Report Type: Report from Study
  Country: KR (occurrence: KR)
  Receive Date: 20130801
  Receipt Date: 20130801
  Transmission Date: 20140515
  Serious: Yes (Death)
  Sender: FDA-Public Use
  Company Number: KR-SANOFI-AVENTIS-2013SA074448

PATIENT
  Age: 51 Year
  Sex: Male
  Weight: 65 kg

DRUGS (2)
  1. LANTUS [Suspect]
     Indication: DIABETES MELLITUS
     Dosage: DOSE:40 UNIT(S)
     Route: 058
     Dates: start: 20130131
  2. NOVORAPID [Suspect]
     Indication: DIABETES MELLITUS
     Dosage: DOSAGE: 22-12-22 UNIT
     Route: 058
     Dates: start: 20130131

REACTIONS (1)
  - Death [Fatal]
